FAERS Safety Report 19743862 (Version 1)
Quarter: 2021Q3

REPORT INFORMATION
  Report Type: Spontaneous
  Country: JP (occurrence: JP)
  Receive Date: 20210824
  Receipt Date: 20210824
  Transmission Date: 20211014
  Serious: Yes (Other)
  Sender: FDA-Public Use
  Company Number: JP-SETONPHARMA-2021SETLIT00001

PATIENT
  Age: 36 Year
  Sex: Male

DRUGS (3)
  1. PREDNISOLONE. [Suspect]
     Active Substance: PREDNISOLONE
     Route: 048
  2. PREDNISOLONE. [Suspect]
     Active Substance: PREDNISOLONE
     Indication: GRANULOMATOSIS WITH POLYANGIITIS
     Route: 048
  3. MIZORIBINE [Suspect]
     Active Substance: MIZORIBINE
     Indication: GRANULOMATOSIS WITH POLYANGIITIS
     Dosage: FOR 8 YEARS
     Route: 065

REACTIONS (10)
  - Disease recurrence [Unknown]
  - Choroidal neovascularisation [Unknown]
  - Granulomatosis with polyangiitis [Unknown]
  - Small intestinal haemorrhage [Unknown]
  - Renal impairment [Unknown]
  - Visual impairment [Unknown]
  - Off label use [Unknown]
  - Serous retinal detachment [Unknown]
  - Detachment of retinal pigment epithelium [Unknown]
  - Arthritis [Unknown]

NARRATIVE: CASE EVENT DATE: 2011
